FAERS Safety Report 19568766 (Version 1)
Quarter: 2021Q3

REPORT INFORMATION
  Report Type: Spontaneous
  Country: GR (occurrence: GR)
  Receive Date: 20210716
  Receipt Date: 20210716
  Transmission Date: 20211014
  Serious: Yes (Hospitalization)
  Sender: FDA-Public Use
  Company Number: GR-TEVA-2021-GR-1931982

PATIENT
  Age: 39 Year
  Sex: Female

DRUGS (4)
  1. VENLAFAXINE [Concomitant]
     Active Substance: VENLAFAXINE HYDROCHLORIDE
     Indication: EMOTIONAL DISTRESS
  2. QUETIAPINE. [Suspect]
     Active Substance: QUETIAPINE
     Indication: EMOTIONAL DISTRESS
     Dosage: 100 TABLETS
     Route: 048
  3. LAMOTRIGINE. [Concomitant]
     Active Substance: LAMOTRIGINE
     Indication: EMOTIONAL DISTRESS
  4. ARIPIPRAZOLE. [Concomitant]
     Active Substance: ARIPIPRAZOLE
     Indication: EMOTIONAL DISTRESS

REACTIONS (2)
  - Drug abuse [Unknown]
  - Serotonin syndrome [Recovered/Resolved]
